FAERS Safety Report 13600591 (Version 1)
Quarter: 2017Q2

REPORT INFORMATION
  Report Type: Spontaneous
  Country: US (occurrence: US)
  Receive Date: 20170601
  Receipt Date: 20170601
  Transmission Date: 20170830
  Serious: No
  Sender: FDA-Public Use
  Company Number: US-ASTRAZENECA-2017SE56363

PATIENT
  Sex: Female

DRUGS (1)
  1. SYMBICORT [Suspect]
     Active Substance: BUDESONIDE\FORMOTEROL FUMARATE DIHYDRATE
     Dosage: 80/4.5MCG, TWO PUFFS TWICE DAILY
     Route: 055

REACTIONS (4)
  - Panic disorder [Unknown]
  - Off label use of device [Unknown]
  - Hypoacusis [Not Recovered/Not Resolved]
  - Dyspnoea [Unknown]
